FAERS Safety Report 7218720-2 (Version None)
Quarter: 2011Q1

REPORT INFORMATION
  Report Type: 
  Country: None (occurrence: None)
  Receive Date: 20110110
  Receipt Date: 20101209
  Transmission Date: 20110831
  Serious: No
  Sender: FDA-Public Use
  Company Number: US-ABBOTT-10P-163-0690486-00

PATIENT
  Sex: Female
  Weight: 61.29 kg

DRUGS (1)
  1. VICODIN [Suspect]
     Indication: PROCEDURAL PAIN
     Route: 048
     Dates: start: 20090101, end: 20090101

REACTIONS (2)
  - ABDOMINAL DISCOMFORT [None]
  - HEADACHE [None]
